FAERS Safety Report 4516451-0 (Version None)
Quarter: 2004Q4

REPORT INFORMATION
  Report Type: 
  Country: None (occurrence: None)
  Receive Date: 20041202
  Receipt Date: 20040907
  Transmission Date: 20050328
  Serious: No
  Sender: FDA-Public Use
  Company Number: US-GLAXOSMITHKLINE-A0524766A

PATIENT
  Age: 27 Year
  Sex: Male

DRUGS (6)
  1. AMOXICILLIN AND CLAVULANATE POTASSIUM [Suspect]
     Indication: ACUTE SINUSITIS
     Dosage: 2TAB TWICE PER DAY
     Route: 048
  2. PHENOBARBITAL TAB [Concomitant]
  3. DILANTIN [Concomitant]
     Route: 065
  4. RISPERDAL [Concomitant]
     Route: 065
  5. LASIX [Concomitant]
  6. POTASSIUM [Concomitant]

REACTIONS (1)
  - DIARRHOEA [None]
